FAERS Safety Report 4856294-1 (Version None)
Quarter: 2005Q4

REPORT INFORMATION
  Report Type: 
  Country: None (occurrence: None)
  Receive Date: 20051215
  Receipt Date: 20051206
  Transmission Date: 20060501
  Serious: Yes (Death)
  Sender: FDA-Public Use
  Company Number: 2005165742

PATIENT
  Age: 75 Year
  Sex: Female

DRUGS (5)
  1. PREGABALIN (PREGABALIN) [Suspect]
     Indication: NEURALGIA
     Dosage: 300 MG (150 MG 2 IN 1 D) ORAL
     Route: 048
     Dates: start: 20051026, end: 20051110
  2. MEBEVERINE (MEBEVERINE) [Concomitant]
  3. LORMETAZEPAM(LORMETAZEPAM) [Concomitant]
  4. PANTOPRAZOLE SODIUM [Concomitant]
  5. MIRTAZAPINE [Concomitant]

REACTIONS (3)
  - CARDIAC DISORDER [None]
  - CHEST PAIN [None]
  - SUDDEN DEATH [None]
